FAERS Safety Report 4843679-2 (Version None)
Quarter: 2005Q4

REPORT INFORMATION
  Report Type: 
  Country: None (occurrence: None)
  Receive Date: 20051202
  Receipt Date: 20051128
  Transmission Date: 20060501
  Serious: Yes (Hospitalization)
  Sender: FDA-Public Use
  Company Number: 2005UW17950

PATIENT
  Age: 83 Year
  Sex: Female

DRUGS (2)
  1. RHINOCORT [Suspect]
     Route: 055
     Dates: start: 20041201
  2. DIABETIC PILL [Suspect]
     Indication: DIABETES MELLITUS

REACTIONS (1)
  - DYSPNOEA [None]
